FAERS Safety Report 5631058-X (Version None)
Quarter: 2008Q1

REPORT INFORMATION
  Report Type: 
  Country: None (occurrence: None)
  Receive Date: 20080219
  Receipt Date: 20080206
  Transmission Date: 20080703
  Serious: Yes (Hospitalization, Other)
  Sender: FDA-Public Use
  Company Number: TR-ELI_LILLY_AND_COMPANY-TR200802003460

PATIENT
  Sex: Male
  Weight: 75 kg

DRUGS (3)
  1. HUMALOG MIX 75/25 [Suspect]
     Dosage: 50 U, EACH MORNING
     Route: 058
     Dates: start: 20071217
  2. HUMALOG MIX 75/25 [Suspect]
     Dosage: 22 U, EACH EVENING
     Route: 058
     Dates: start: 20071217
  3. ORAL ANTIDIABETICS [Concomitant]
     Dosage: UNK, UNKNOWN
     Dates: end: 20071217

REACTIONS (2)
  - DIABETES MELLITUS INADEQUATE CONTROL [None]
  - WOUND [None]
